FAERS Safety Report 9533847 (Version 1)
Quarter: 2013Q2

REPORT INFORMATION
  Report Type: Spontaneous
  Country: US (occurrence: None)
  Receive Date: 20130419
  Receipt Date: 20130419
  Transmission Date: 20140414
  Serious: Yes (Other)
  Sender: FDA-Public Use
  Company Number: FK201201609

PATIENT
  Sex: Female

DRUGS (1)
  1. HEPARIN [Suspect]
     Indication: CARDIAC OPERATION

REACTIONS (3)
  - Drug effect decreased [None]
  - Deep vein thrombosis [None]
  - Pulmonary embolism [None]
